FAERS Safety Report 9675432 (Version 5)
Quarter: 2015Q4

REPORT INFORMATION
  Report Type: Spontaneous
  Country: US (occurrence: US)
  Receive Date: 20131107
  Receipt Date: 20151020
  Transmission Date: 20160305
  Serious: Yes (Hospitalization, Other)
  Sender: FDA-Public Use
  Company Number: US-BAYER-2013-134569

PATIENT
  Age: 24 Year
  Sex: Female
  Weight: 64 kg

DRUGS (1)
  1. MIRENA [Suspect]
     Active Substance: LEVONORGESTREL
     Indication: CONTRACEPTION
     Dosage: 20 MCG/24HR, CONT
     Route: 015
     Dates: start: 200812, end: 201110

REACTIONS (8)
  - Device issue [None]
  - Uterine cervical pain [None]
  - Uterine perforation [None]
  - Emotional distress [None]
  - Deep vein thrombosis [Recovered/Resolved]
  - Depression [None]
  - Uterine pain [None]
  - Injury [None]

NARRATIVE: CASE EVENT DATE: 200905
